FAERS Safety Report 21352469 (Version 3)
Quarter: 2022Q4

REPORT INFORMATION
  Report Type: Report from Study
  Country: DE (occurrence: DE)
  Receive Date: 20220920
  Receipt Date: 20221128
  Transmission Date: 20230113
  Serious: Yes (Hospitalization)
  Sender: FDA-Public Use
  Company Number: DE-JNJFOC-20220927285

PATIENT
  Age: 66 Year
  Sex: Female
  Weight: 82 kg

DRUGS (7)
  1. GUSELKUMAB [Suspect]
     Active Substance: GUSELKUMAB
     Indication: Psoriasis
     Route: 065
     Dates: start: 20220209
  2. GUSELKUMAB [Suspect]
     Active Substance: GUSELKUMAB
     Dosage: AT WEEK 4
     Route: 065
     Dates: start: 20220314
  3. GUSELKUMAB [Suspect]
     Active Substance: GUSELKUMAB
     Dosage: AT WEEK 20
     Route: 065
     Dates: start: 20220620
  4. GUSELKUMAB [Suspect]
     Active Substance: GUSELKUMAB
     Dosage: AT WEEK 28
     Route: 065
     Dates: start: 20220922
  5. AMLODIPINE [Concomitant]
     Active Substance: AMLODIPINE BESYLATE
     Indication: Hypertension
     Route: 065
     Dates: start: 20200101
  6. BISOPROLOL [Concomitant]
     Active Substance: BISOPROLOL
     Indication: Hypertension
     Route: 065
     Dates: start: 20200101
  7. INSULIN NOS [Concomitant]
     Active Substance: INSULIN NOS
     Indication: Diabetes mellitus
     Route: 065

REACTIONS (2)
  - Pneumonia [Recovered/Resolved]
  - Treatment noncompliance [Unknown]

NARRATIVE: CASE EVENT DATE: 20220101
